FAERS Safety Report 6543229-9 (Version None)
Quarter: 2010Q1

REPORT INFORMATION
  Report Type: 
  Country: None (occurrence: None)
  Receive Date: 20100120
  Receipt Date: 20100115
  Transmission Date: 20100710
  Serious: Yes (Other)
  Sender: FDA-Public Use
  Company Number: CN-WYE-G05128409

PATIENT
  Sex: Male
  Weight: 65 kg

DRUGS (3)
  1. MOROCTOCOG ALFA AF OSA [Suspect]
     Indication: FACTOR VIII DEFICIENCY
     Dosage: 3000IU GIVEN FOR INITIAL RECOVERY
     Route: 040
     Dates: start: 20090424, end: 20090424
  2. MOROCTOCOG ALFA AF OSA [Suspect]
     Dosage: 34500IU GIVEN ON DEMAND, CUMULATIVE
     Route: 040
     Dates: start: 20090429, end: 20091023
  3. MOROCTOCOG ALFA AF OSA [Suspect]
     Dosage: 3000IU GIVEN FOR FINAL RECOVERY
     Route: 040
     Dates: start: 20091030, end: 20091030

REACTIONS (1)
  - FACTOR VIII INHIBITION [None]
